FAERS Safety Report 5680017-X (Version None)
Quarter: 2008Q1

REPORT INFORMATION
  Report Type: 
  Country: None (occurrence: None)
  Receive Date: 20080325
  Receipt Date: 20080325
  Transmission Date: 20080703
  Serious: Yes (Hospitalization)
  Sender: FDA-Public Use
  Company Number: None

PATIENT
  Age: 53 Year
  Sex: Female
  Weight: 66.2 kg

DRUGS (1)
  1. ZICAM COLD NO-DRIP NASAL GEL   UNK   MATRIXX [Suspect]
     Indication: NASOPHARYNGITIS
     Dosage: NASAL
     Route: 045
     Dates: start: 20080123, end: 20080214

REACTIONS (3)
  - CHEST DISCOMFORT [None]
  - INCORRECT DOSE ADMINISTERED [None]
  - NON-CARDIAC CHEST PAIN [None]
